FAERS Safety Report 5649160-5 (Version None)
Quarter: 2008Q1

REPORT INFORMATION
  Report Type: 
  Country: None (occurrence: None)
  Receive Date: 20080304
  Receipt Date: 20080226
  Transmission Date: 20080703
  Serious: Yes (Hospitalization)
  Sender: FDA-Public Use
  Company Number: US-ALLERGAN-0801591US

PATIENT
  Age: 45 Year
  Sex: Female

DRUGS (2)
  1. BOTOX COSMETIC [Suspect]
     Indication: SKIN WRINKLING
     Dosage: UNK, SINGLE
     Route: 030
     Dates: start: 20071101, end: 20071101
  2. BOTOX COSMETIC [Suspect]
     Dosage: UNK, SINGLE
     Route: 030
     Dates: start: 20071201, end: 20071201

REACTIONS (8)
  - AREFLEXIA [None]
  - DIPLOPIA [None]
  - DYSPHAGIA [None]
  - DYSSTASIA [None]
  - EYELID PTOSIS [None]
  - GUILLAIN-BARRE SYNDROME [None]
  - HYPOAESTHESIA [None]
  - PARAESTHESIA [None]
